FAERS Safety Report 9386291 (Version 2)
Quarter: 2013Q4

REPORT INFORMATION
  Report Type: Report from Study
  Country: US (occurrence: US)
  Receive Date: 20130708
  Receipt Date: 20131213
  Transmission Date: 20140711
  Serious: Yes (Life-Threatening, Hospitalization)
  Sender: FDA-Public Use
  Company Number: US-JNJFOC-20130620404

PATIENT
  Age: 53 Year
  Sex: Female
  Weight: 92 kg

DRUGS (7)
  1. APAP [Suspect]
     Route: 048
  2. APAP [Suspect]
     Indication: PRODUCT USED FOR UNKNOWN INDICATION
     Route: 048
     Dates: start: 20130626
  3. OXYCODONE [Suspect]
     Indication: PRODUCT USED FOR UNKNOWN INDICATION
     Route: 048
  4. OXYCONTIN [Concomitant]
     Route: 065
  5. ALPRAZOLAM [Concomitant]
     Route: 065
  6. CITALOPRAM [Concomitant]
     Route: 065
  7. METOPROLOL [Concomitant]
     Route: 065

REACTIONS (8)
  - Overdose [Recovered/Resolved]
  - Dysarthria [Recovered/Resolved]
  - Toxicity to various agents [Recovered/Resolved]
  - Somnolence [Recovered/Resolved]
  - Ischaemic hepatitis [Recovered/Resolved]
  - Respiratory depression [Recovered/Resolved]
  - Acute prerenal failure [Recovered/Resolved]
  - Dehydration [Recovered/Resolved]
